FAERS Safety Report 17857963 (Version 1)
Quarter: 2020Q2

REPORT INFORMATION
  Report Type: Spontaneous
  Country: GB (occurrence: GB)
  Receive Date: 20200604
  Receipt Date: 20200604
  Transmission Date: 20200714
  Serious: Yes (Death, Other)
  Sender: FDA-Public Use
  Company Number: GB-CIPLA LTD.-2020GB03818

PATIENT

DRUGS (6)
  1. VALGANCICLOVIR. [Suspect]
     Active Substance: VALGANCICLOVIR
     Indication: CYTOMEGALOVIRUS INFECTION
     Dosage: 900 MILLIGRAM, QD (450-900 MG/D)
     Route: 065
  2. LEFLUNOMIDE. [Suspect]
     Active Substance: LEFLUNOMIDE
     Indication: CYTOMEGALOVIRUS INFECTION
     Dosage: 20 MILLIGRAM, BID
     Route: 065
  3. CYCLOSPORINE. [Suspect]
     Active Substance: CYCLOSPORINE
     Indication: IMMUNOSUPPRESSION
     Dosage: 8 MILLIGRAM/KILOGRAM, QD (4 - 8 MG/KG/DAY IN TWO DIVIDED DOSES)
     Route: 065
  4. AZATHIOPRINE. [Suspect]
     Active Substance: AZATHIOPRINE
     Indication: IMMUNOSUPPRESSION
     Dosage: 2 MILLIGRAM/KILOGRAM, QD (DOSE: 1-2 MG/ KG/D)
     Route: 048
  5. GANCICLOVIR SODIUM. [Suspect]
     Active Substance: GANCICLOVIR SODIUM
     Indication: CYTOMEGALOVIRUS INFECTION
     Dosage: 5 MILLIGRAM/KILOGRAM, QD
     Route: 042
  6. CYTOTECT [Suspect]
     Active Substance: HUMAN CYTOMEGALOVIRUS IMMUNE GLOBULIN
     Indication: CYTOMEGALOVIRUS INFECTION
     Dosage: UNK, QD; 2-3 ML/KG, EXPRESSED IN LOG10 COPIES/ML: 4.6 TO 5.2 WEEKLY
     Route: 065

REACTIONS (6)
  - Renal impairment [Unknown]
  - Complications of transplanted lung [Fatal]
  - Drug resistance [Unknown]
  - Oedema peripheral [Unknown]
  - Cytomegalovirus infection [Unknown]
  - Fluid retention [Unknown]
